FAERS Safety Report 5814344-X (Version None)
Quarter: 2008Q3

REPORT INFORMATION
  Report Type: 
  Country: None (occurrence: None)
  Receive Date: 20080715
  Receipt Date: 20080703
  Transmission Date: 20090109
  Serious: Yes (Hospitalization)
  Sender: FDA-Public Use
  Company Number: 2008AL005639

PATIENT
  Age: 54 Year
  Sex: Male
  Weight: 92.5338 kg

DRUGS (8)
  1. DIGOXIN [Suspect]
     Indication: BLOOD PRESSURE MANAGEMENT
     Dosage: 0.25MG DAILY PO
     Route: 048
  2. FUROSEMIDE [Concomitant]
  3. HYDROCHLOROT [Concomitant]
  4. CAPTOPRIL [Concomitant]
  5. LANOXIN [Concomitant]
  6. CARVEDILOL [Concomitant]
  7. PRAVASTIN [Concomitant]
  8. KLOR-CON [Concomitant]

REACTIONS (5)
  - ATRIAL FIBRILLATION [None]
  - CARDIAC FAILURE CONGESTIVE [None]
  - DIZZINESS [None]
  - DYSPNOEA [None]
  - INSOMNIA [None]
